FAERS Safety Report 8921386 (Version 1)
Quarter: 2012Q4

REPORT INFORMATION
  Report Type: 
  Country: US (occurrence: US)
  Receive Date: 20121121
  Receipt Date: 20121121
  Transmission Date: 20130627
  Serious: No
  Sender: FDA-Public Use
  Company Number: US-ASTRAZENECA-2012SE84717

PATIENT
  Age: 56 Year
  Sex: Female

DRUGS (2)
  1. RHINOCORT AQUA [Suspect]
     Route: 045
  2. SEROQUEL XR [Suspect]
     Route: 048

REACTIONS (3)
  - Gait disturbance [Unknown]
  - Bipolar disorder [Unknown]
  - Feeling abnormal [Unknown]
